FAERS Safety Report 19892429 (Version 1)
Quarter: 2021Q3

REPORT INFORMATION
  Report Type: Spontaneous
  Country: JP (occurrence: JP)
  Receive Date: 20210929
  Receipt Date: 20210929
  Transmission Date: 20211014
  Serious: Yes (Other)
  Sender: FDA-Public Use
  Company Number: JP-SUN PHARMACEUTICAL INDUSTRIES LTD-2021R1-312436

PATIENT
  Age: 68 Year
  Sex: Female
  Weight: 57.9 kg

DRUGS (1)
  1. FORMOTEROL/BUDESONIDE [Suspect]
     Active Substance: BUDESONIDE\FORMOTEROL
     Indication: ASTHMA
     Dosage: UNK (18/640 MCG TWICE DAILY)

REACTIONS (2)
  - Atrial fibrillation [Recovering/Resolving]
  - Tachycardia [Recovering/Resolving]
